FAERS Safety Report 23432642 (Version 1)
Quarter: 2024Q1

REPORT INFORMATION
  Report Type: Spontaneous
  Country: IN (occurrence: IN)
  Receive Date: 20240123
  Receipt Date: 20240123
  Transmission Date: 20240409
  Serious: Yes (Hospitalization)
  Sender: FDA-Public Use
  Company Number: IN-MYLANLABS-2024M1006549

PATIENT
  Age: 63 Year
  Sex: Female

DRUGS (4)
  1. DOXORUBICIN [Suspect]
     Active Substance: DOXORUBICIN
     Indication: Sarcoma
     Dosage: UNK
     Route: 065
     Dates: start: 201803
  2. GEMCITABINE [Suspect]
     Active Substance: GEMCITABINE
     Indication: Sarcoma
     Dosage: UNK, Q3W
     Route: 065
     Dates: start: 201808
  3. DOCETAXEL [Suspect]
     Active Substance: DOCETAXEL\DOCETAXEL ANHYDROUS
     Indication: Sarcoma
     Dosage: UNK, Q3W
     Route: 065
     Dates: start: 201808
  4. PAZOPANIB [Suspect]
     Active Substance: PAZOPANIB
     Indication: Sarcoma
     Dosage: 800 MILLIGRAM, QD
     Route: 065
     Dates: start: 201905

REACTIONS (2)
  - Drug ineffective [Unknown]
  - Disease progression [Unknown]
